FAERS Safety Report 6198190-6 (Version None)
Quarter: 2009Q2

REPORT INFORMATION
  Report Type: 
  Country: None (occurrence: None)
  Receive Date: 20090521
  Receipt Date: 20090514
  Transmission Date: 20091009
  Serious: Yes (Hospitalization)
  Sender: FDA-Public Use
  Company Number: US-MERCK-0905USA02196

PATIENT
  Sex: Female

DRUGS (1)
  1. MEVACOR [Suspect]
     Route: 048
     Dates: start: 20080101

REACTIONS (6)
  - ADVERSE EVENT [None]
  - ASTHENIA [None]
  - DIARRHOEA [None]
  - DYSGEUSIA [None]
  - FATIGUE [None]
  - RASH [None]
